FAERS Safety Report 6060644-0 (Version None)
Quarter: 2009Q1

REPORT INFORMATION
  Report Type: 
  Country: None (occurrence: None)
  Receive Date: 20090130
  Receipt Date: 20090130
  Transmission Date: 20090719
  Serious: No
  Sender: FDA-Public Use
  Company Number: None

PATIENT
  Age: 75 Year
  Sex: Female
  Weight: 58.0604 kg

DRUGS (1)
  1. LEVAQUIN [Suspect]
     Indication: BRONCHITIS
     Dosage: 1 TAB DAILY STOPPED USE WHEN SORENESS DEVELOPED IN LEGS
     Dates: start: 20081005, end: 20081008

REACTIONS (7)
  - JOINT STIFFNESS [None]
  - JOINT SWELLING [None]
  - MUSCLE TIGHTNESS [None]
  - OEDEMA PERIPHERAL [None]
  - SKIN DISORDER [None]
  - TENDERNESS [None]
  - TENDON DISORDER [None]
